FAERS Safety Report 16358338 (Version 2)
Quarter: 2019Q2

REPORT INFORMATION
  Report Type: Spontaneous
  Country: AT (occurrence: AT)
  Receive Date: 20190527
  Receipt Date: 20190621
  Transmission Date: 20190711
  Serious: Yes (Other)
  Sender: FDA-Public Use
  Company Number: AT-PFIZER INC-2019215820

PATIENT
  Sex: Female

DRUGS (6)
  1. ZUCLOPENTHIXOL [Concomitant]
     Active Substance: ZUCLOPENTHIXOL
     Dosage: 50 MG THRICE I.M.
     Route: 030
  2. LORAZEPAM. [Suspect]
     Active Substance: LORAZEPAM
  3. CLOZAPIN [Suspect]
     Active Substance: CLOZAPINE
     Indication: PSYCHOTIC SYMPTOM
     Dosage: UNK
     Route: 048
  4. PALIPERIDONE I.M. [Suspect]
     Active Substance: PALIPERIDONE
     Indication: PSYCHOTIC SYMPTOM
     Dosage: UNK
     Route: 030
  5. CLOZAPIN ORAL [Suspect]
     Active Substance: CLOZAPINE
     Indication: PSYCHOTIC SYMPTOM
     Dosage: UNK
     Route: 048
  6. PALIPERIDONE-DEPOT [Suspect]
     Active Substance: PALIPERIDONE
     Indication: PSYCHOTIC SYMPTOM

REACTIONS (7)
  - Fatigue [Unknown]
  - Weight increased [Unknown]
  - Stress [Unknown]
  - Dysuria [Recovered/Resolved]
  - Treatment noncompliance [Recovered/Resolved]
  - Psychotic symptom [Recovered/Resolved]
  - Priapism [Recovered/Resolved]
